FAERS Safety Report 15980608 (Version 1)
Quarter: 2019Q1

REPORT INFORMATION
  Report Type: Spontaneous
  Country: JP (occurrence: JP)
  Receive Date: 20190219
  Receipt Date: 20190219
  Transmission Date: 20190418
  Serious: Yes (Hospitalization, Other)
  Sender: FDA-Public Use
  Company Number: JP-PFIZER INC-2019058470

PATIENT
  Age: 42 Year
  Sex: Female

DRUGS (2)
  1. TORISEL [Suspect]
     Active Substance: TEMSIROLIMUS
     Dosage: UNK, WEEKLY
  2. TORISEL [Suspect]
     Active Substance: TEMSIROLIMUS
     Dosage: UNK, EVERY OTHER WEEK

REACTIONS (2)
  - Loss of consciousness [Unknown]
  - Seizure [Unknown]
